FAERS Safety Report 6275451-3 (Version None)
Quarter: 2009Q3

REPORT INFORMATION
  Report Type: 
  Country: None (occurrence: None)
  Receive Date: 20090721
  Receipt Date: 20090717
  Transmission Date: 20100115
  Serious: Yes (Life-Threatening, Hospitalization, Other)
  Sender: FDA-Public Use
  Company Number: JP-JNJFOC-20090702630

PATIENT
  Sex: Female

DRUGS (3)
  1. TOPINA [Suspect]
     Indication: EPILEPSY
     Route: 048
  2. TEGRETOL [Concomitant]
     Indication: EPILEPSY
     Route: 048
  3. ALEVIATIN [Concomitant]
     Indication: EPILEPSY
     Route: 048

REACTIONS (5)
  - DYSLALIA [None]
  - GRAND MAL CONVULSION [None]
  - PSYCHIATRIC SYMPTOM [None]
  - RHABDOMYOLYSIS [None]
  - STATUS EPILEPTICUS [None]
